FAERS Safety Report 9505727 (Version 1)
Quarter: 2013Q1

REPORT INFORMATION
  Report Type: Spontaneous
  Country: US (occurrence: None)
  Receive Date: 20130225
  Receipt Date: 20130225
  Transmission Date: 20140127
  Serious: No
  Sender: FDA-Public Use
  Company Number: 366642

PATIENT
  Sex: Male

DRUGS (2)
  1. VICTOZA (LIRAGLUTIDE) SOLUTION FOR INJECTION, 6MG/ML [Suspect]
     Indication: PRODUCT USED FOR UNKNOWN INDICATION
     Route: 058
  2. METFORMIN (METFORMIN) [Concomitant]

REACTIONS (5)
  - Lethargy [None]
  - Aphagia [None]
  - Abdominal pain upper [None]
  - Nausea [None]
  - Blood glucose decreased [None]
